FAERS Safety Report 4481842-3 (Version None)
Quarter: 2004Q3

REPORT INFORMATION
  Report Type: 
  Country: None (occurrence: None)
  Receive Date: 20040921
  Receipt Date: 20030722
  Transmission Date: 20050211
  Serious: Yes (Other)
  Sender: FDA-Public Use
  Company Number: 163-20785-03040270

PATIENT
  Age: 60 Year
  Sex: Male

DRUGS (1)
  1. THALOMID [Suspect]
     Indication: METASTATIC MALIGNANT MELANOMA
     Dosage: 200 MG DAILY, ORAL
     Route: 048
     Dates: start: 20030318, end: 20030513

REACTIONS (1)
  - ANAEMIA [None]
